FAERS Safety Report 5494639-2 (Version None)
Quarter: 2007Q4

REPORT INFORMATION
  Report Type: 
  Country: None (occurrence: None)
  Receive Date: 20071023
  Receipt Date: 20071023
  Transmission Date: 20080405
  Serious: Yes (Life-Threatening, Hospitalization)
  Sender: FDA-Public Use
  Company Number: None

PATIENT
  Age: 3 Year
  Sex: Male
  Weight: 21.7727 kg

DRUGS (1)
  1. DEPAKOTE [Suspect]
     Indication: ATONIC SEIZURES
     Dosage: 375 MG / 500 MG  QAM, QPM  PO
     Route: 048
     Dates: start: 20070801, end: 20071004

REACTIONS (3)
  - CONVULSION [None]
  - HALLUCINATION [None]
  - PANCREATITIS [None]
